FAERS Safety Report 5584740-7 (Version None)
Quarter: 2008Q1

REPORT INFORMATION
  Report Type: 
  Country: None (occurrence: None)
  Receive Date: 20080108
  Receipt Date: 20080103
  Transmission Date: 20080703
  Serious: Yes (Other)
  Sender: FDA-Public Use
  Company Number: JP-PFIZER INC-2008001187

PATIENT
  Age: 71 Year
  Sex: Male

DRUGS (1)
  1. METHYLPREDNISOLONE 16MG TAB [Suspect]
     Indication: CRYPTOGENIC ORGANISING PNEUMONIA

REACTIONS (1)
  - HERPES OESOPHAGITIS [None]
